FAERS Safety Report 8412404-0 (Version None)
Quarter: 2012Q2

REPORT INFORMATION
  Report Type: 
  Country: None (occurrence: None)
  Receive Date: 20120605
  Receipt Date: 20120523
  Transmission Date: 20120825
  Serious: Yes (Hospitalization, Other)
  Sender: FDA-Public Use
  Company Number: IT-ELI_LILLY_AND_COMPANY-IT201205008381

PATIENT
  Sex: Male

DRUGS (3)
  1. SINEMET [Concomitant]
     Dosage: 3 DF, QD
     Route: 048
     Dates: start: 20110201, end: 20120104
  2. CLOZAPINE [Concomitant]
     Indication: MAJOR DEPRESSION
     Dosage: 37.5 MG, QD
     Route: 048
     Dates: start: 20110201, end: 20120106
  3. CYMBALTA [Suspect]
     Indication: MAJOR DEPRESSION
     Dosage: 60 MG, QD
     Route: 048
     Dates: start: 20100101, end: 20111220

REACTIONS (2)
  - DYSKINESIA [None]
  - MENINGIOMA [None]
